FAERS Safety Report 6030887-0 (Version None)
Quarter: 2009Q1

REPORT INFORMATION
  Report Type: 
  Country: None (occurrence: None)
  Receive Date: 20090107
  Receipt Date: 20081229
  Transmission Date: 20090719
  Serious: Yes (Hospitalization, Other)
  Sender: FDA-Public Use
  Company Number: US-CVT-080129

PATIENT

DRUGS (17)
  1. RANEXA [Suspect]
     Indication: ANGINA PECTORIS
     Dosage: 500 MG, QD
     Route: 048
  2. RANEXA [Interacting]
     Indication: CARDIAC FAILURE
  3. DILTIAZEM [Suspect]
     Indication: ANGINA PECTORIS
     Dosage: 60 MG, BID
     Route: 048
  4. DILTIAZEM [Suspect]
     Indication: CARDIAC FAILURE
  5. CARVEDILOL [Suspect]
     Indication: ANGINA PECTORIS
     Dosage: 12.5 MG, BID
     Route: 048
  6. CARVEDILOL [Suspect]
     Indication: CARDIAC FAILURE
  7. CYCLOSPORINE [Suspect]
     Indication: RENAL TRANSPLANT
     Dosage: 75 MG, BID
     Dates: start: 20070101
  8. SIMVASTATIN [Suspect]
     Dosage: 40 MG, QD
     Dates: start: 19960101
  9. FUROSEMIDE                         /00032601/ [Concomitant]
  10. TAMSULOSIN HCL [Concomitant]
  11. SERTRALINE [Concomitant]
  12. FLUDROCORTISONE ACETATE [Concomitant]
  13. CLONIDINE [Concomitant]
  14. ESOMEPRAZOLE MAGNESIUM [Concomitant]
  15. CLOPIDOGREL                        /01220701/ [Concomitant]
  16. INSULIN GLARGINE [Concomitant]
  17. METOPROLOL                         /00376901/ [Concomitant]

REACTIONS (2)
  - DRUG INTERACTION [None]
  - RHABDOMYOLYSIS [None]
